FAERS Safety Report 8506738-9 (Version None)
Quarter: 2012Q3

REPORT INFORMATION
  Report Type: 
  Country: None (occurrence: None)
  Receive Date: 20120712
  Receipt Date: 20120702
  Transmission Date: 20120928
  Serious: No
  Sender: FDA-Public Use
  Company Number: US-ASTRAZENECA-2012SE45305

PATIENT
  Age: 62 Year
  Sex: Female

DRUGS (6)
  1. METFORMIN HCL [Concomitant]
  2. CYMBALTA [Concomitant]
  3. LEVOTHROID [Concomitant]
  4. NEXIUM [Suspect]
     Route: 048
  5. ADVAIR DISKUS 100/50 [Concomitant]
  6. SIMVASTATIN [Concomitant]

REACTIONS (8)
  - FIBROMYALGIA [None]
  - PAIN IN EXTREMITY [None]
  - BACK PAIN [None]
  - MUSCULOSKELETAL PAIN [None]
  - CERVICAL SPINAL STENOSIS [None]
  - TREMOR [None]
  - DEPRESSION [None]
  - NECK PAIN [None]
